FAERS Safety Report 9638575 (Version 1)
Quarter: 2013Q4

REPORT INFORMATION
  Report Type: Spontaneous
  Country: GB (occurrence: GB)
  Receive Date: 20131022
  Receipt Date: 20131022
  Transmission Date: 20140711
  Serious: Yes (Life-Threatening)
  Sender: FDA-Public Use
  Company Number: GB-BRISTOL-MYERS SQUIBB COMPANY-19533553

PATIENT
  Age: 70 Year
  Sex: Female
  Weight: 139.8 kg

DRUGS (22)
  1. APIXABAN [Suspect]
     Indication: ATRIAL FIBRILLATION
     Dates: start: 20130821, end: 20130912
  2. DIGOXIN [Concomitant]
     Indication: ATRIAL FIBRILLATION
     Dosage: 250MCG BUT DOSE WITHHELD ON 12/09/2103
     Route: 048
     Dates: start: 20130919
  3. BISOPROLOL [Concomitant]
     Indication: ATRIAL FIBRILLATION
     Route: 048
  4. RAMIPRIL [Concomitant]
     Indication: HYPERTENSION
     Route: 048
  5. FUROSEMIDE [Concomitant]
     Route: 048
  6. TRANSTEC [Concomitant]
     Indication: PAIN
     Dosage: 35MCG/HOUR
     Route: 061
  7. BUPRENORPHINE [Concomitant]
     Indication: PAIN
     Route: 060
  8. GABAPENTIN [Concomitant]
     Indication: PAIN
     Route: 048
  9. DULOXETINE HCL [Concomitant]
     Indication: PAIN
     Route: 048
  10. PARACETAMOL [Concomitant]
     Indication: PAIN
     Route: 048
  11. FERROUS FUMARATE [Concomitant]
     Route: 048
  12. GLICLAZIDE [Concomitant]
     Indication: DIABETES MELLITUS
     Route: 048
  13. METFORMIN HCL [Concomitant]
     Indication: DIABETES MELLITUS
     Route: 048
  14. LANSOPRAZOLE [Concomitant]
     Indication: GASTROOESOPHAGEAL REFLUX DISEASE
     Route: 048
  15. LEVOTHYROXINE [Concomitant]
     Indication: HYPOTHYROIDISM
     Route: 048
  16. SIMVASTATIN [Concomitant]
     Indication: BLOOD CHOLESTEROL INCREASED
     Dosage: AT NIGHT
     Route: 048
  17. BETAMETHASONE [Concomitant]
     Indication: ECZEMA
     Dosage: AT NIGHT
     Route: 061
  18. CLIOQUINOL [Concomitant]
     Indication: ECZEMA
     Dosage: AT NIGHT
     Route: 061
  19. DAKTACORT [Concomitant]
     Indication: ECZEMA
     Route: 061
  20. DOUBLEBASE [Concomitant]
     Indication: ECZEMA
     Route: 061
  21. DIMETICONE [Concomitant]
  22. BENZALKONIUM CHLORIDE [Concomitant]

REACTIONS (1)
  - Renal failure acute [Recovered/Resolved]
